FAERS Safety Report 11088438 (Version 2)
Quarter: 2015Q2

REPORT INFORMATION
  Report Type: Spontaneous
  Country: US (occurrence: US)
  Receive Date: 20150504
  Receipt Date: 20150617
  Transmission Date: 20150821
  Serious: Yes (Death)
  Sender: FDA-Public Use
  Company Number: US-CELGENEUS-USA-2015046763

PATIENT
  Age: 57 Year
  Sex: Female
  Weight: 51.3 kg

DRUGS (5)
  1. CYCLOPHOSPHAMIDE. [Concomitant]
     Active Substance: CYCLOPHOSPHAMIDE
     Indication: PLASMA CELL MYELOMA
     Route: 048
     Dates: start: 20140320, end: 20150424
  2. REVLIMID [Suspect]
     Active Substance: LENALIDOMIDE
     Dosage: 4 MILLIGRAM
     Route: 048
     Dates: start: 20140805, end: 201410
  3. REVLIMID [Suspect]
     Active Substance: LENALIDOMIDE
     Indication: PLASMA CELL MYELOMA
     Route: 048
     Dates: start: 20140509
  4. POMALYST [Suspect]
     Active Substance: POMALIDOMIDE
     Indication: PLASMA CELL MYELOMA
     Route: 065
     Dates: start: 20141024, end: 2014
  5. REVLIMID [Suspect]
     Active Substance: LENALIDOMIDE
     Route: 048
     Dates: start: 201503, end: 20150424

REACTIONS (2)
  - Plasma cell myeloma [Fatal]
  - Pneumonia [Fatal]

NARRATIVE: CASE EVENT DATE: 20150424
